FAERS Safety Report 7249415-7 (Version None)
Quarter: 2011Q1

REPORT INFORMATION
  Report Type: 
  Country: None (occurrence: None)
  Receive Date: 20110128
  Receipt Date: 20101216
  Transmission Date: 20110831
  Serious: Yes (Death, Hospitalization)
  Sender: FDA-Public Use
  Company Number: US-BAYER-200937488NA

PATIENT
  Sex: Female
  Weight: 73 kg

DRUGS (9)
  1. UNCODEABLE ^UNCLASSIFIABLE^ [Concomitant]
     Dosage: UNK
     Dates: end: 20071026
  2. PROMETHAZINE [Concomitant]
  3. ALLEGRA-D 12 HOUR [Concomitant]
     Dosage: UNK UNK, BID
     Route: 048
  4. LORTAB [Concomitant]
     Dosage: UNK
     Dates: end: 20071026
  5. MUCINEX [Concomitant]
     Dosage: UNK
     Dates: end: 20071026
  6. TETRACAIN [Concomitant]
     Dosage: UNK
     Dates: end: 20071026
  7. PHENERGAN [Concomitant]
     Dosage: UNK
     Dates: end: 20071026
  8. YASMIN [Suspect]
     Indication: ORAL CONTRACEPTION
     Dosage: UNK UNK, QD
     Dates: end: 20071018
  9. CEFZIL [Concomitant]
     Dosage: 250 MG, BID
     Route: 048

REACTIONS (4)
  - PULMONARY EMBOLISM [None]
  - TONSILLITIS [None]
  - OROPHARYNGEAL PAIN [None]
  - HAEMOPTYSIS [None]
